FAERS Safety Report 6418060-5 (Version None)
Quarter: 2009Q4

REPORT INFORMATION
  Report Type: 
  Country: None (occurrence: None)
  Receive Date: 20091026
  Receipt Date: 20091013
  Transmission Date: 20100525
  Serious: Yes (Life-Threatening, Hospitalization, Other)
  Sender: FDA-Public Use
  Company Number: ADR36852009

PATIENT
  Age: 73 Year
  Sex: Male

DRUGS (11)
  1. SIMVASTATIN [Suspect]
     Indication: MYOCARDIAL ISCHAEMIA
     Dosage: 80 MG, ORAL
     Route: 048
     Dates: end: 20071209
  2. ALLOPURINOL [Concomitant]
  3. ASPIRIN [Concomitant]
  4. ATENOLOL [Concomitant]
  5. DOXAZOSIN MESYLATE [Concomitant]
  6. FERROUS SULPHATE (200MG) [Concomitant]
  7. GLYCERYL TRINITRATE (400 ?G) [Concomitant]
  8. LANSOPRAZOLE [Concomitant]
  9. NIFEDIPINE [Concomitant]
  10. PARACETAMOL (1 G) [Concomitant]
  11. PENICILLIN V ( 250 MG) [Concomitant]

REACTIONS (3)
  - PH URINE INCREASED [None]
  - RENAL FAILURE [None]
  - RHABDOMYOLYSIS [None]
